FAERS Safety Report 7576210-1 (Version None)
Quarter: 2011Q2

REPORT INFORMATION
  Report Type: 
  Country: None (occurrence: None)
  Receive Date: 20110628
  Receipt Date: 20100116
  Transmission Date: 20111010
  Serious: Yes (Death, Other)
  Sender: FDA-Public Use
  Company Number: US-BAYER-201011384NA

PATIENT
  Age: 65 Year
  Sex: Male
  Weight: 77 kg

DRUGS (22)
  1. TRASYLOL [Suspect]
     Indication: CORONARY ARTERY BYPASS
     Dosage: 1 ML INITIAL TEST DOSE
     Route: 042
     Dates: start: 20040227, end: 20040228
  2. HYDROCHLOROTHIAZIDE [Concomitant]
     Dosage: 12.5 MG
     Route: 048
  3. TOPROL-XL [Concomitant]
     Dosage: 50 MG, QD
     Route: 048
  4. ANCEF [Concomitant]
     Dosage: 1 GRAM
     Route: 042
     Dates: start: 20040224
  5. ALBUMIN (HUMAN) [Concomitant]
     Dosage: UNK
     Dates: start: 20040227
  6. HEPARIN [Concomitant]
     Dosage: 3 MG/KG
     Route: 042
     Dates: start: 20040227
  7. PLAVIX [Concomitant]
     Dosage: 75 MG, QD
     Route: 048
  8. TRASYLOL [Suspect]
     Dosage: 200ML LOADING DOSE
     Route: 042
     Dates: start: 20040227, end: 20040228
  9. RED BLOOD CELLS [Concomitant]
     Dosage: 1 U, ONCE
     Route: 042
     Dates: start: 20040227
  10. NITROGLYCERIN [Concomitant]
  11. LOVENOX [Concomitant]
     Dosage: 80 MG
     Route: 058
     Dates: start: 20040222
  12. ZOCOR [Concomitant]
     Dosage: 20 MG, QD
     Route: 048
  13. BACITRACIN [Concomitant]
     Dosage: 50,000
     Dates: start: 20040227
  14. ENALAPRIL MALEATE [Concomitant]
     Dosage: 10 MG
     Route: 048
  15. CARDIZEM CD [Concomitant]
     Dosage: 240 MG, QD
     Route: 048
  16. VERSED [Concomitant]
     Dosage: UNK
     Dates: start: 20040227
  17. ZINACEF [Concomitant]
     Dosage: UNK
     Dates: start: 20040227
  18. LASIX [Concomitant]
     Dosage: 80 MG
     Route: 042
  19. TRASYLOL [Suspect]
     Dosage: 50ML/HR INFUSION
     Route: 042
     Dates: start: 20040227, end: 20040228
  20. VANCOMYCIN [Concomitant]
     Dosage: 1 GRAM
     Route: 042
     Dates: start: 20040227
  21. ACETYLSALICYLIC ACID SRT [Concomitant]
     Dosage: 81 MG/3 TABS
     Route: 048
  22. VASOTEC [Concomitant]
     Route: 048

REACTIONS (15)
  - RENAL FAILURE [None]
  - MYOCARDIAL INFARCTION [None]
  - ORGAN FAILURE [None]
  - UNEVALUABLE EVENT [None]
  - DEATH [None]
  - CEREBROVASCULAR ACCIDENT [None]
  - PAIN [None]
  - DEPRESSION [None]
  - RENAL INJURY [None]
  - CARDIAC DISORDER [None]
  - RENAL IMPAIRMENT [None]
  - ANXIETY [None]
  - FEAR [None]
  - ANHEDONIA [None]
  - INJURY [None]
